FAERS Safety Report 7270047-9 (Version None)
Quarter: 2011Q1

REPORT INFORMATION
  Report Type: 
  Country: None (occurrence: None)
  Receive Date: 20110202
  Receipt Date: 20110126
  Transmission Date: 20110831
  Serious: Yes (Death)
  Sender: FDA-Public Use
  Company Number: FR-ROCHE-756183

PATIENT
  Sex: Female

DRUGS (1)
  1. ROACTEMRA [Suspect]
     Dosage: FREQUENCY: CYCLE
     Route: 042
     Dates: end: 20110107

REACTIONS (1)
  - SUDDEN DEATH [None]
